FAERS Safety Report 19604874 (Version 2)
Quarter: 2023Q2

REPORT INFORMATION
  Report Type: Spontaneous
  Country: US (occurrence: US)
  Receive Date: 20210723
  Receipt Date: 20230522
  Transmission Date: 20230721
  Serious: No
  Sender: FDA-Public Use
  Company Number: US-EUSA PHARMA (NETHERLANDS) B.V.-2021US000261

PATIENT

DRUGS (3)
  1. SYLVANT [Suspect]
     Active Substance: SILTUXIMAB
     Indication: Castleman^s disease
     Dosage: CYCLE 1
     Route: 065
  2. SYLVANT [Suspect]
     Active Substance: SILTUXIMAB
     Dosage: CYCLE 2
     Route: 065
  3. SYLVANT [Suspect]
     Active Substance: SILTUXIMAB
     Dosage: CYCLE 3
     Route: 065

REACTIONS (2)
  - Lymphadenopathy mediastinal [Unknown]
  - Drug ineffective [Unknown]
